FAERS Safety Report 4808649-9 (Version None)
Quarter: 2005Q4

REPORT INFORMATION
  Report Type: 
  Country: None (occurrence: None)
  Receive Date: 20051021
  Receipt Date: 20051011
  Transmission Date: 20060501
  Serious: Yes (Other)
  Sender: FDA-Public Use
  Company Number: SEWYE048812OCT05

PATIENT
  Sex: Female

DRUGS (1)
  1. LEVONORGESTREL [Suspect]
     Indication: ORAL CONTRACEPTION
     Dosage: 30 MICROGRAM DAILY ORAL
     Route: 048

REACTIONS (1)
  - PERICARDITIS [None]
